FAERS Safety Report 20619271 (Version 2)
Quarter: 2022Q2

REPORT INFORMATION
  Report Type: Spontaneous
  Country: US (occurrence: US)
  Receive Date: 20220322
  Receipt Date: 20220622
  Transmission Date: 20220721
  Serious: Yes (Other)
  Sender: FDA-Public Use
  Company Number: US-SA-SAC20220316001722

PATIENT
  Age: 46 Year
  Sex: Female

DRUGS (3)
  1. ZANTAC [Suspect]
     Active Substance: RANITIDINE HYDROCHLORIDE
     Indication: Dyspepsia
     Dosage: UNK, QD
     Dates: start: 200601, end: 201801
  2. ZANTAC [Suspect]
     Active Substance: RANITIDINE HYDROCHLORIDE
     Indication: Abdominal discomfort
  3. ZANTAC [Suspect]
     Active Substance: RANITIDINE HYDROCHLORIDE
     Indication: Gastrooesophageal reflux disease

REACTIONS (7)
  - Bladder cancer stage IV [Unknown]
  - Breast cancer stage III [Unknown]
  - Gastrointestinal carcinoma [Unknown]
  - Uterine cancer [Unknown]
  - Gastric cancer stage IV [Not Recovered/Not Resolved]
  - Ovarian cancer stage III [Unknown]
  - Fallopian tube cancer stage IV [Not Recovered/Not Resolved]

NARRATIVE: CASE EVENT DATE: 19930101
